FAERS Safety Report 6130309-5 (Version None)
Quarter: 2009Q1

REPORT INFORMATION
  Report Type: 
  Country: None (occurrence: None)
  Receive Date: 20090324
  Receipt Date: 20090319
  Transmission Date: 20090719
  Serious: Yes (Other)
  Sender: FDA-Public Use
  Company Number: US-ASTRAZENECA-2008UW24706

PATIENT
  Age: 86 Year
  Sex: Female
  Weight: 80.3 kg

DRUGS (3)
  1. ARIMIDEX [Suspect]
     Indication: BREAST CANCER
     Route: 048
     Dates: start: 20070301
  2. BENICAR [Concomitant]
  3. METOPROLOL SUCCINATE EXTENDED RELEASE [Concomitant]
     Route: 048

REACTIONS (8)
  - ARTHRITIS [None]
  - BACK PAIN [None]
  - EYE DISORDER [None]
  - FEELING ABNORMAL [None]
  - LIMB DISCOMFORT [None]
  - MUSCULOSKELETAL PAIN [None]
  - SURGERY [None]
  - TREATMENT NONCOMPLIANCE [None]
